FAERS Safety Report 7564898-0 (Version None)
Quarter: 2011Q2

REPORT INFORMATION
  Report Type: 
  Country: None (occurrence: None)
  Receive Date: 20110622
  Receipt Date: 20110208
  Transmission Date: 20111010
  Serious: Yes (Death)
  Sender: FDA-Public Use
  Company Number: US-MYLANLABS-2011S1002538

PATIENT
  Age: 69 Year
  Sex: Female

DRUGS (18)
  1. IPRATROPIUM BROMIDE [Concomitant]
     Route: 055
  2. SIMVASTATIN [Concomitant]
  3. NORVASC [Concomitant]
  4. BONIVA [Concomitant]
  5. XANAX [Concomitant]
  6. SYNTHROID [Concomitant]
  7. PAROXETINE HCL [Concomitant]
  8. SEROQUEL [Concomitant]
  9. DAILY MULTIVITAMIN [Concomitant]
  10. CLOZAPINE [Suspect]
     Dates: end: 20110131
  11. BENZTROPINE MESYLATE [Concomitant]
  12. ARICEPT [Concomitant]
  13. NOVOLOG [Concomitant]
  14. METAMUCIL-2 [Concomitant]
  15. MOM [Concomitant]
  16. PROMETHAZINE [Concomitant]
  17. ATENOLOL [Concomitant]
  18. LANTUS [Concomitant]

REACTIONS (1)
  - DEATH [None]
